FAERS Safety Report 5573288-1 (Version None)
Quarter: 2007Q4

REPORT INFORMATION
  Report Type: 
  Country: None (occurrence: None)
  Receive Date: 20071224
  Receipt Date: 20071220
  Transmission Date: 20080405
  Serious: Yes (Other)
  Sender: FDA-Public Use
  Company Number: PHRM2007FR02549

PATIENT
  Age: 56 Year
  Sex: Female
  Weight: 65 kg

DRUGS (1)
  1. FEMARA [Suspect]
     Indication: BREAST CANCER
     Dosage: UNK, UNK
     Route: 048
     Dates: start: 20051001

REACTIONS (6)
  - CONCOMITANT DISEASE PROGRESSION [None]
  - PEMPHIGOID [None]
  - PRURITUS GENERALISED [None]
  - PRURITUS GENITAL [None]
  - RASH PAPULAR [None]
  - SKIN LESION [None]
